FAERS Safety Report 7797204-7 (Version None)
Quarter: 2011Q4

REPORT INFORMATION
  Report Type: 
  Country: None (occurrence: None)
  Receive Date: 20111005
  Receipt Date: 20110922
  Transmission Date: 20120403
  Serious: Yes (Hospitalization, Other)
  Sender: FDA-Public Use
  Company Number: PHHY2011BR84617

PATIENT
  Age: 76 Year
  Sex: Male
  Weight: 102 kg

DRUGS (3)
  1. TEGRETOL [Suspect]
     Indication: PARTIAL SEIZURES
     Dosage: UNK UKN, UNK
     Dates: start: 20021201
  2. GLYBURIDE [Interacting]
  3. METFORMIN HCL [Interacting]

REACTIONS (28)
  - LEFT VENTRICULAR HYPERTROPHY [None]
  - AORTIC DILATATION [None]
  - WHEEZING [None]
  - EJECTION FRACTION DECREASED [None]
  - HYPERTENSION [None]
  - DILATATION VENTRICULAR [None]
  - VENTRICULAR EXTRASYSTOLES [None]
  - CHEST PAIN [None]
  - CORONARY ARTERY DISEASE [None]
  - DRUG INTERACTION [None]
  - CONVULSION [None]
  - VOMITING [None]
  - DYSPNOEA [None]
  - BLOOD CHOLESTEROL INCREASED [None]
  - PYREXIA [None]
  - DIASTOLIC DYSFUNCTION [None]
  - RESPIRATORY TRACT INFECTION [None]
  - DYSPEPSIA [None]
  - AORTIC CALCIFICATION [None]
  - LEUKOCYTOSIS [None]
  - BLOOD GLUCOSE INCREASED [None]
  - LOW DENSITY LIPOPROTEIN INCREASED [None]
  - HIGH DENSITY LIPOPROTEIN DECREASED [None]
  - NAUSEA [None]
  - GALLOP RHYTHM PRESENT [None]
  - HEART RATE INCREASED [None]
  - ELECTROCARDIOGRAM REPOLARISATION ABNORMALITY [None]
  - EOSINOPHIL COUNT INCREASED [None]
